FAERS Safety Report 4367803-3 (Version None)
Quarter: 2004Q2

REPORT INFORMATION
  Report Type: 
  Country: None (occurrence: None)
  Receive Date: 20040526
  Receipt Date: 20040303
  Transmission Date: 20050107
  Serious: Yes (Hospitalization)
  Sender: FDA-Public Use
  Company Number: USA040360889

PATIENT
  Age: 45 Year
  Sex: Female
  Weight: 61 kg

DRUGS (4)
  1. ZYPREXA [Suspect]
     Indication: ANXIETY
     Dosage: 5 MG
     Dates: start: 20011101
  2. ZYPREXA [Suspect]
     Indication: NERVOUSNESS
     Dosage: 5 MG
     Dates: start: 20011101
  3. PROVIGIL [Concomitant]
  4. LEXAPRO [Concomitant]

REACTIONS (1)
  - PANCREATITIS [None]
